FAERS Safety Report 6623069-2 (Version None)
Quarter: 2010Q1

REPORT INFORMATION
  Report Type: 
  Country: None (occurrence: None)
  Receive Date: 20100310
  Receipt Date: 20100105
  Transmission Date: 20100710
  Serious: No
  Sender: FDA-Public Use
  Company Number: US-BIOGENIDEC-2009BI040384

PATIENT
  Sex: Female

DRUGS (2)
  1. AVONEX [Suspect]
     Indication: MULTIPLE SCLEROSIS
     Route: 030
     Dates: start: 20020101
  2. AVONEX [Suspect]
     Route: 030
     Dates: start: 20091029

REACTIONS (6)
  - DERMATITIS CONTACT [None]
  - INJECTION SITE HAEMORRHAGE [None]
  - MOTOR DYSFUNCTION [None]
  - MUSCLE SPASMS [None]
  - TRIGEMINAL NEURALGIA [None]
  - WHITE BLOOD CELL COUNT DECREASED [None]
